FAERS Safety Report 8833478 (Version 1)
Quarter: 2012Q4

REPORT INFORMATION
  Report Type: 
  Country: US (occurrence: US)
  Receive Date: 20121010
  Receipt Date: 20121010
  Transmission Date: 20130627
  Serious: No
  Sender: FDA-Public Use
  Company Number: US-BAYER-2012-106063

PATIENT
  Age: 63 Year
  Sex: Female

DRUGS (4)
  1. CIPRO [Suspect]
  2. GAS X [Concomitant]
     Indication: ABDOMINAL DISTENSION
     Dosage: 1 or 2 capsules
     Route: 048
  3. FISH OIL [Concomitant]
  4. UNKNOWN SUPPLEMENT [Concomitant]

REACTIONS (1)
  - Rash [Recovered/Resolved]
